FAERS Safety Report 20207633 (Version 1)
Quarter: 2021Q4

REPORT INFORMATION
  Report Type: Spontaneous
  Country: CZ (occurrence: CZ)
  Receive Date: 20211220
  Receipt Date: 20211220
  Transmission Date: 20220303
  Serious: Yes (Other)
  Sender: FDA-Public Use
  Company Number: None

PATIENT
  Age: 37 Year
  Sex: Female

DRUGS (3)
  1. MEDROL [Suspect]
     Active Substance: METHYLPREDNISOLONE
     Indication: Tenosynovitis
     Dosage: 16 MG
     Route: 048
     Dates: start: 20210630, end: 202109
  2. OMEPRAZOL TEVA [OMEPRAZOLE] [Concomitant]
     Indication: Dyspepsia
     Dosage: 1-0-0 ONLY DURING MEDROL TREATMENT
     Route: 048
     Dates: start: 20210701, end: 202109
  3. DIOSMIN\HESPERIDIN [Concomitant]
     Active Substance: DIOSMIN\HESPERIDIN
     Indication: Peripheral venous disease
     Route: 048

REACTIONS (20)
  - Muscle spasms [Recovered/Resolved with Sequelae]
  - Speech disorder [Not Recovered/Not Resolved]
  - Eye pain [Recovering/Resolving]
  - Tremor [Recovering/Resolving]
  - Restless legs syndrome [Not Recovered/Not Resolved]
  - Intraocular pressure increased [Recovering/Resolving]
  - Muscle twitching [Recovered/Resolved with Sequelae]
  - Steroid withdrawal syndrome [Not Recovered/Not Resolved]
  - Acne [Recovering/Resolving]
  - Oral herpes [Not Recovered/Not Resolved]
  - Menstruation irregular [Recovered/Resolved]
  - Pruritus [Recovered/Resolved]
  - Blood potassium decreased [Not Recovered/Not Resolved]
  - Hyperhidrosis [Recovering/Resolving]
  - Malaise [Not Recovered/Not Resolved]
  - Impaired healing [Recovered/Resolved]
  - Fatigue [Not Recovered/Not Resolved]
  - Aphthous ulcer [Not Recovered/Not Resolved]
  - Hypertrichosis [Recovered/Resolved with Sequelae]
  - Headache [Recovered/Resolved]

NARRATIVE: CASE EVENT DATE: 20210101
